FAERS Safety Report 21485657 (Version 2)
Quarter: 2022Q4

REPORT INFORMATION
  Report Type: Spontaneous
  Country: JP (occurrence: JP)
  Receive Date: 20221020
  Receipt Date: 20221025
  Transmission Date: 20230112
  Serious: Yes (Hospitalization)
  Sender: FDA-Public Use
  Company Number: JP-GSKNCCC-Case-01592765_AE-63334

PATIENT

DRUGS (1)
  1. SULTANOL [Suspect]
     Active Substance: ALBUTEROL SULFATE
     Dosage: UNK

REACTIONS (1)
  - Hospitalisation [Unknown]
